FAERS Safety Report 14913944 (Version 2)
Quarter: 2018Q3

REPORT INFORMATION
  Report Type: Spontaneous
  Country: JP (occurrence: JP)
  Receive Date: 20180518
  Receipt Date: 20180702
  Transmission Date: 20181010
  Serious: Yes (Other)
  Sender: FDA-Public Use
  Company Number: JP-PFIZER INC-2018198834

PATIENT
  Age: 84 Year
  Sex: Female
  Weight: 42 kg

DRUGS (9)
  1. LIMAPROST ALFADEX [Concomitant]
     Active Substance: LIMAPROST
     Indication: PAIN IN EXTREMITY
     Dosage: 5 UG, 3X/DAY
  2. ATORVASTATIN CALCIUM. [Suspect]
     Active Substance: ATORVASTATIN CALCIUM
     Dosage: 5 MG, 1X/DAY
     Route: 048
  3. GOSHAJINKIGAN [Concomitant]
     Active Substance: HERBALS
     Indication: PAIN IN EXTREMITY
     Dosage: 2.5 G, 3X/DAY
     Route: 048
     Dates: start: 20080930
  4. ELCITONIN [Concomitant]
     Active Substance: ELCATONIN
     Indication: PAIN IN EXTREMITY
     Dosage: 20 IU, MONTHLY
     Route: 030
  5. SM [Concomitant]
     Indication: PAIN IN EXTREMITY
     Dosage: 1 G, 3X/DAY
     Route: 048
  6. IFENPRODIL TARTRATE [Concomitant]
     Active Substance: IFENPRODIL TARTRATE
     Indication: PAIN IN EXTREMITY
     Dosage: 20 MG, 3X/DAY
     Route: 048
  7. MECOBALAMIN [Concomitant]
     Active Substance: METHYLCOBALAMIN
     Indication: PAIN IN EXTREMITY
     Dosage: 500 UG, 3X/DAY
     Route: 048
  8. SALMETEROL XINAFOATE/FLUTICASONE PROPIONATE [Concomitant]
     Active Substance: FLUTICASONE PROPIONATE\SALMETEROL XINAFOATE
     Indication: PAIN IN EXTREMITY
     Dosage: 100 UG, 2X/DAY
     Route: 048
  9. CYPERUS ROTUNDUS W/EMBELIA RIBES/HONEY/IRON/P [Concomitant]
     Indication: PAIN IN EXTREMITY
     Dosage: 0.3 G, 3X/DAY
     Route: 048
     Dates: start: 20080930

REACTIONS (2)
  - Pancreatic neoplasm [Not Recovered/Not Resolved]
  - Spinal compression fracture [Recovered/Resolved]

NARRATIVE: CASE EVENT DATE: 20110822
